FAERS Safety Report 10554273 (Version 3)
Quarter: 2014Q4

REPORT INFORMATION
  Report Type: Spontaneous
  Country: US (occurrence: US)
  Receive Date: 20141030
  Receipt Date: 20141124
  Transmission Date: 20150529
  Serious: No
  Sender: FDA-Public Use
  Company Number: US-PFIZER INC-2014296355

PATIENT
  Age: 64 Year
  Sex: Male
  Weight: 74.83 kg

DRUGS (9)
  1. ASPIRIN. [Concomitant]
     Active Substance: ASPIRIN
     Dosage: 81 MG, 1X/DAY
     Route: 048
  2. VASOTEC [Concomitant]
     Active Substance: ENALAPRIL MALEATE
     Indication: CARDIAC DISORDER
     Dosage: 5 MG, DAILY
     Route: 048
  3. ALDACTONE [Interacting]
     Active Substance: SPIRONOLACTONE
     Indication: MYOCARDIAL INFARCTION
     Dosage: 25 MG, 1X/DAY
     Route: 048
     Dates: end: 20141014
  4. COLCRYS [Concomitant]
     Active Substance: COLCHICINE
     Dosage: 0.6MG TWO TABLETS, DAILY
     Route: 048
  5. DIGOXIN. [Concomitant]
     Active Substance: DIGOXIN
     Dosage: 125 MCG, 1X/ DAY
     Route: 048
  6. VIAGRA [Suspect]
     Active Substance: SILDENAFIL CITRATE
     Indication: SEXUAL DYSFUNCTION
     Dosage: UNK
     Dates: start: 1997, end: 1997
  7. ZOCOR [Concomitant]
     Active Substance: SIMVASTATIN
     Indication: BLOOD CHOLESTEROL
     Dosage: 40 MG, 1X/DAY AT NIGHT
  8. LASIX [Concomitant]
     Active Substance: FUROSEMIDE
     Dosage: 20 MG IN THE MORNING AND 20 MG IN THE NIGHT
  9. COREG [Concomitant]
     Active Substance: CARVEDILOL
     Dosage: 3.125 MG, DAILY
     Route: 048

REACTIONS (2)
  - Drug interaction [Unknown]
  - Drug ineffective [Recovered/Resolved]

NARRATIVE: CASE EVENT DATE: 1997
